FAERS Safety Report 5319972-6 (Version None)
Quarter: 2007Q2

REPORT INFORMATION
  Report Type: 
  Country: None (occurrence: None)
  Receive Date: 20070509
  Receipt Date: 20070502
  Transmission Date: 20071010
  Serious: Yes (Death, Life-Threatening, Other)
  Sender: FDA-Public Use
  Company Number: DE-BAYER-200710267BVD

PATIENT
  Age: 47 Year
  Sex: Female
  Weight: 70 kg

DRUGS (1)
  1. MOXIFLOXACIN HCL [Suspect]
     Indication: INFECTION
     Route: 065
     Dates: start: 20070219, end: 20070219

REACTIONS (4)
  - APNOEA [None]
  - CARDIAC ARREST [None]
  - DYSPNOEA [None]
  - LOSS OF CONSCIOUSNESS [None]
